FAERS Safety Report 19096776 (Version 5)
Quarter: 2021Q3

REPORT INFORMATION
  Report Type: Spontaneous
  Country: US (occurrence: US)
  Receive Date: 20210406
  Receipt Date: 20210715
  Transmission Date: 20211014
  Serious: No
  Sender: FDA-Public Use
  Company Number: NVSC2021US075623

PATIENT
  Age: 59 Year
  Sex: Male

DRUGS (2)
  1. MAYZENT [Suspect]
     Active Substance: SIPONIMOD
     Indication: PRODUCT USED FOR UNKNOWN INDICATION
     Dosage: 2 MG, QD
     Route: 048
     Dates: start: 20210302
  2. MAYZENT [Suspect]
     Active Substance: SIPONIMOD
     Dosage: 2 MG, QD
     Route: 048
     Dates: start: 20210303

REACTIONS (5)
  - Contusion [Unknown]
  - Dry skin [Unknown]
  - Drug ineffective [Unknown]
  - Balance disorder [Unknown]
  - Blister [Unknown]

NARRATIVE: CASE EVENT DATE: 20210302
